FAERS Safety Report 12983844 (Version 1)
Quarter: 2016Q4

REPORT INFORMATION
  Report Type: Spontaneous
  Country: US (occurrence: US)
  Receive Date: 20161129
  Receipt Date: 20161129
  Transmission Date: 20170207
  Serious: Yes (Other)
  Sender: FDA-Public Use
  Company Number: US-CELGENEUS-USA-2016103795

PATIENT
  Sex: Female
  Weight: 56.3 kg

DRUGS (3)
  1. DEXAMETHASONE. [Concomitant]
     Active Substance: DEXAMETHASONE
     Indication: PRODUCT USED FOR UNKNOWN INDICATION
     Route: 065
  2. REVLIMID [Suspect]
     Active Substance: LENALIDOMIDE
     Indication: PLASMA CELL MYELOMA
     Dosage: 25MG DAYS 1-14 OF EVERY 21 DAYS
     Route: 048
     Dates: start: 20160701
  3. VELCADE [Concomitant]
     Active Substance: BORTEZOMIB
     Indication: PRODUCT USED FOR UNKNOWN INDICATION
     Route: 065

REACTIONS (12)
  - Basal cell carcinoma [Unknown]
  - Faeces soft [Unknown]
  - Fatigue [Unknown]
  - Chromaturia [Unknown]
  - Urine odour abnormal [Unknown]
  - Erythema [Unknown]
  - Nausea [Unknown]
  - Disturbance in attention [Unknown]
  - Contusion [Unknown]
  - Dizziness [Unknown]
  - Constipation [Unknown]
  - Oropharyngeal pain [Unknown]

NARRATIVE: CASE EVENT DATE: 2016
